FAERS Safety Report 10043789 (Version 2)
Quarter: 2014Q1

REPORT INFORMATION
  Report Type: Spontaneous
  Country: US (occurrence: US)
  Receive Date: 20140328
  Receipt Date: 20140328
  Transmission Date: 20141002
  Serious: No
  Sender: FDA-Public Use
  Company Number: US-009507513-1403USA000683

PATIENT
  Age: 62 Year
  Sex: Female
  Weight: 81.63 kg

DRUGS (2)
  1. CLARITIN LIQUIGELS [Suspect]
     Indication: SEASONAL ALLERGY
     Dosage: UNK, UNKNOWN
     Route: 048
     Dates: start: 20140124, end: 20140226
  2. CLARITIN LIQUIGELS [Suspect]
     Indication: SINUS CONGESTION

REACTIONS (1)
  - Constipation [Recovered/Resolved]
